FAERS Safety Report 4881977-7 (Version None)
Quarter: 2006Q1

REPORT INFORMATION
  Report Type: 
  Country: None (occurrence: None)
  Receive Date: 20060117
  Receipt Date: 20060115
  Transmission Date: 20060701
  Serious: Yes (Hospitalization)
  Sender: FDA-Public Use
  Company Number: 2006000831

PATIENT
  Age: 58 Year
  Sex: Female

DRUGS (1)
  1. QUILONUM RETARD [Suspect]
     Dosage: 450MG UNKNOWN
     Route: 048

REACTIONS (8)
  - ACCOMMODATION DISORDER [None]
  - ATRIOVENTRICULAR BLOCK [None]
  - ATRIOVENTRICULAR BLOCK FIRST DEGREE [None]
  - BLOOD POTASSIUM INCREASED [None]
  - DIPLOPIA [None]
  - MEMORY IMPAIRMENT [None]
  - POLYCYTHAEMIA [None]
  - TREMOR [None]
